FAERS Safety Report 18936414 (Version 1)
Quarter: 2021Q1

REPORT INFORMATION
  Report Type: Spontaneous
  Country: IR (occurrence: IR)
  Receive Date: 20210225
  Receipt Date: 20210225
  Transmission Date: 20210420
  Serious: Yes (Hospitalization, Other)
  Sender: FDA-Public Use
  Company Number: IR-LUPIN PHARMACEUTICALS INC.-2021-02201

PATIENT
  Age: 27 Year
  Sex: Male
  Weight: 75 kg

DRUGS (2)
  1. HUMAN GROWTH HORMONE, RECOMBINANT [Suspect]
     Active Substance: SOMATROPIN
     Indication: DRUG ABUSE
     Dosage: 20 MILLIGRAM, QD
     Route: 065
  2. TESTOSTERONE. [Suspect]
     Active Substance: TESTOSTERONE
     Indication: DRUG ABUSE
     Dosage: 250 MILLIGRAM (TWICE PER WEEK)
     Route: 030

REACTIONS (2)
  - Drug abuse [Unknown]
  - Aortic dissection [Unknown]
